FAERS Safety Report 15558349 (Version 1)
Quarter: 2018Q4

REPORT INFORMATION
  Report Type: Spontaneous
  Country: US (occurrence: US)
  Receive Date: 20181028
  Receipt Date: 20181028
  Transmission Date: 20190205
  Serious: Yes (Hospitalization, Other)
  Sender: FDA-Public Use
  Company Number: US-DEXPHARM-20180803

PATIENT
  Age: 2 Year
  Sex: Female

DRUGS (22)
  1. CLONAZEPAM. [Concomitant]
     Active Substance: CLONAZEPAM
     Indication: FEBRILE INFECTION-RELATED EPILEPSY SYNDROME
  2. VALPROIC ACID. [Concomitant]
     Active Substance: VALPROIC ACID
     Indication: FEBRILE INFECTION-RELATED EPILEPSY SYNDROME
  3. TOPIRAMATE. [Concomitant]
     Active Substance: TOPIRAMATE
     Indication: FEBRILE INFECTION-RELATED EPILEPSY SYNDROME
  4. LORAZEPAM. [Concomitant]
     Active Substance: LORAZEPAM
     Indication: FEBRILE INFECTION-RELATED EPILEPSY SYNDROME
  5. ACETAMINOPHEN. [Suspect]
     Active Substance: ACETAMINOPHEN
  6. CEFOTAXIME [Suspect]
     Active Substance: CEFOTAXIME SODIUM
  7. PHENYTOIN. [Suspect]
     Active Substance: PHENYTOIN
     Indication: FEBRILE INFECTION-RELATED EPILEPSY SYNDROME
  8. PROPOFOL. [Concomitant]
     Active Substance: PROPOFOL
     Indication: FEBRILE INFECTION-RELATED EPILEPSY SYNDROME
  9. OMEPRAZOLE. [Suspect]
     Active Substance: OMEPRAZOLE
  10. FOSPHENYTOIN [Suspect]
     Active Substance: FOSPHENYTOIN
     Indication: FEBRILE INFECTION-RELATED EPILEPSY SYNDROME
  11. ANAKINRA [Concomitant]
     Active Substance: ANAKINRA
     Indication: FEBRILE INFECTION-RELATED EPILEPSY SYNDROME
  12. VANCOMYCIN [Suspect]
     Active Substance: VANCOMYCIN
  13. FELBAMATE. [Concomitant]
     Active Substance: FELBAMATE
     Indication: FEBRILE INFECTION-RELATED EPILEPSY SYNDROME
  14. LEVETIRACETAM. [Concomitant]
     Active Substance: LEVETIRACETAM
     Indication: FEBRILE INFECTION-RELATED EPILEPSY SYNDROME
  15. PHENOBARBITAL. [Suspect]
     Active Substance: PHENOBARBITAL
     Indication: FEBRILE INFECTION-RELATED EPILEPSY SYNDROME
  16. CEFTRIAXONE. [Suspect]
     Active Substance: CEFTRIAXONE
  17. AMPICILLIN [Suspect]
     Active Substance: AMPICILLIN
  18. LACOSAMIDE. [Suspect]
     Active Substance: LACOSAMIDE
     Indication: FEBRILE INFECTION-RELATED EPILEPSY SYNDROME
  19. MIDAZOLAM [Concomitant]
     Active Substance: MIDAZOLAM HYDROCHLORIDE
     Indication: FEBRILE INFECTION-RELATED EPILEPSY SYNDROME
     Dosage: AS NECESSARY
  20. FENTANYL. [Concomitant]
     Active Substance: FENTANYL
     Indication: FEBRILE INFECTION-RELATED EPILEPSY SYNDROME
  21. PRECEDEX [Concomitant]
     Active Substance: DEXMEDETOMIDINE HYDROCHLORIDE
     Indication: FEBRILE INFECTION-RELATED EPILEPSY SYNDROME
  22. METHYLPREDNISOLONE. [Concomitant]
     Active Substance: METHYLPREDNISOLONE
     Indication: FEBRILE INFECTION-RELATED EPILEPSY SYNDROME
     Dosage: HIGH DOSE

REACTIONS (2)
  - Laryngeal stenosis [Recovering/Resolving]
  - Drug reaction with eosinophilia and systemic symptoms [Recovering/Resolving]
